FAERS Safety Report 9632430 (Version 1)
Quarter: 2013Q4

REPORT INFORMATION
  Report Type: Spontaneous
  Country: US (occurrence: US)
  Receive Date: 20131018
  Receipt Date: 20131018
  Transmission Date: 20140711
  Serious: No
  Sender: FDA-Public Use
  Company Number: US-PFIZER INC-2013296635

PATIENT
  Age: 54 Year
  Sex: Female

DRUGS (1)
  1. XELJANZ [Suspect]
     Indication: RHEUMATOID ARTHRITIS
     Dosage: 5 MG 1TAB, 2X/DAY
     Dates: start: 20130914, end: 20131007

REACTIONS (3)
  - Drug ineffective [Unknown]
  - Pain [Unknown]
  - Joint swelling [Unknown]
